FAERS Safety Report 19374980 (Version 1)
Quarter: 2021Q2

REPORT INFORMATION
  Report Type: Spontaneous
  Country: US (occurrence: US)
  Receive Date: 20210604
  Receipt Date: 20210604
  Transmission Date: 20210717
  Serious: Yes (Disabling, Other)
  Sender: FDA-Public Use
  Company Number: US-SA-2021SA165315

PATIENT
  Age: 56 Year
  Sex: Male

DRUGS (1)
  1. DUPIXENT [Suspect]
     Active Substance: DUPILUMAB
     Indication: DERMATITIS ATOPIC
     Dosage: 300 MG, QOW
     Route: 058
     Dates: start: 201501, end: 2018

REACTIONS (15)
  - Visual impairment [Not Recovered/Not Resolved]
  - Corneal neovascularisation [Not Recovered/Not Resolved]
  - Limbal stem cell deficiency [Not Recovered/Not Resolved]
  - Vision blurred [Recovering/Resolving]
  - Corneal scar [Not Recovered/Not Resolved]
  - Symblepharon [Not Recovered/Not Resolved]
  - Conjunctivitis [Recovering/Resolving]
  - Eyelid irritation [Recovering/Resolving]
  - Conjunctivalisation [Not Recovered/Not Resolved]
  - Skin exfoliation [Recovering/Resolving]
  - Scleral disorder [Not Recovered/Not Resolved]
  - Eye inflammation [Not Recovered/Not Resolved]
  - Trichiasis [Recovering/Resolving]
  - Diplopia [Not Recovered/Not Resolved]
  - Corneal opacity [Not Recovered/Not Resolved]

NARRATIVE: CASE EVENT DATE: 201601
